FAERS Safety Report 26203763 (Version 1)
Quarter: 2025Q4

REPORT INFORMATION
  Report Type: Spontaneous
  Country: EU (occurrence: EU)
  Receive Date: 20251226
  Receipt Date: 20251226
  Transmission Date: 20260117
  Serious: Yes (Other)
  Sender: BOEHRINGER INGELHEIM
  Company Number: EU-SANDOZ-SDZ2025SI095401

PATIENT
  Age: 73 Year
  Sex: Male

DRUGS (6)
  1. EMPAGLIFLOZIN [Suspect]
     Active Substance: EMPAGLIFLOZIN
     Indication: Product used for unknown indication
  2. METFORMIN [Suspect]
     Active Substance: METFORMIN HYDROCHLORIDE
     Indication: Type 2 diabetes mellitus
  3. SITAGLIPTIN [Suspect]
     Active Substance: SITAGLIPTIN
     Indication: Type 2 diabetes mellitus
  4. SITAGLIPTIN [Suspect]
     Active Substance: SITAGLIPTIN
  5. GLICLAZIDE [Suspect]
     Active Substance: GLICLAZIDE
     Indication: Type 2 diabetes mellitus
  6. METFORMIN [Suspect]
     Active Substance: METFORMIN HYDROCHLORIDE
     Indication: Product used for unknown indication

REACTIONS (7)
  - Pain in extremity [Unknown]
  - Arthralgia [Unknown]
  - Insomnia [Unknown]
  - Decreased appetite [Unknown]
  - Hypoglycaemia [Unknown]
  - Abdominal distension [Recovering/Resolving]
  - Product dose omission issue [Unknown]
